FAERS Safety Report 25176088 (Version 2)
Quarter: 2025Q2

REPORT INFORMATION
  Report Type: Spontaneous
  Country: IT (occurrence: IT)
  Receive Date: 20250409
  Receipt Date: 20250625
  Transmission Date: 20250717
  Serious: Yes (Other)
  Sender: AUROBINDO
  Company Number: IT-AUROBINDO-AUR-APL-2025-018275

PATIENT
  Age: 53 Year
  Sex: Female

DRUGS (11)
  1. FULVESTRANT [Suspect]
     Active Substance: FULVESTRANT
     Indication: Breast cancer metastatic
     Route: 065
  2. LETROZOLE [Suspect]
     Active Substance: LETROZOLE
     Indication: Breast cancer metastatic
     Route: 065
  3. Capecitabine;Lapatinib [Concomitant]
     Indication: Breast cancer metastatic
     Route: 065
     Dates: start: 200901
  4. TRASTUZUMAB [Concomitant]
     Active Substance: TRASTUZUMAB
     Indication: Breast cancer metastatic
     Route: 065
  5. DOXORUBICIN [Concomitant]
     Active Substance: DOXORUBICIN
     Indication: Breast cancer metastatic
     Route: 065
  6. CYCLOPHOSPHAMIDE [Concomitant]
     Active Substance: CYCLOPHOSPHAMIDE
     Indication: Breast cancer metastatic
     Route: 042
  7. METHOTREXATE [Concomitant]
     Active Substance: METHOTREXATE
     Indication: Breast cancer metastatic
     Route: 042
  8. FLUOROURACIL [Concomitant]
     Active Substance: FLUOROURACIL
     Indication: Breast cancer metastatic
     Route: 042
  9. TAMOXIFEN [Concomitant]
     Active Substance: TAMOXIFEN
     Indication: Breast cancer metastatic
     Route: 065
  10. PACLITAXEL [Concomitant]
     Active Substance: PACLITAXEL
     Indication: Breast cancer metastatic
     Route: 065
  11. LAPATINIB [Concomitant]
     Active Substance: LAPATINIB
     Indication: Breast cancer metastatic
     Route: 065

REACTIONS (1)
  - Drug ineffective [Unknown]
